FAERS Safety Report 15742257 (Version 2)
Quarter: 2018Q4

REPORT INFORMATION
  Report Type: Spontaneous
  Country: FR (occurrence: FR)
  Receive Date: 20181219
  Receipt Date: 20181220
  Transmission Date: 20190205
  Serious: Yes (Other)
  Sender: FDA-Public Use
  Company Number: FR-SA-2018SA343955

PATIENT
  Age: 79 Year
  Sex: Female
  Weight: 75 kg

DRUGS (2)
  1. RIFADINE [Suspect]
     Active Substance: RIFAMPIN
     Indication: ENDOCARDITIS
     Route: 048
     Dates: start: 20181010, end: 20181029
  2. CEFAZOLIN SODIUM. [Suspect]
     Active Substance: CEFAZOLIN SODIUM
     Indication: ENDOCARDITIS
     Route: 042
     Dates: start: 20181010, end: 20181030

REACTIONS (1)
  - Hypoprothrombinaemia [Recovered/Resolved]

NARRATIVE: CASE EVENT DATE: 20181019
